FAERS Safety Report 5878274-X (Version None)
Quarter: 2008Q3

REPORT INFORMATION
  Report Type: 
  Country: None (occurrence: None)
  Receive Date: 20080911
  Receipt Date: 20080909
  Transmission Date: 20090109
  Serious: Yes (Death)
  Sender: FDA-Public Use
  Company Number: PH-AVENTIS-200814591EU

PATIENT
  Age: 64 Year
  Sex: Male

DRUGS (7)
  1. ENOXAPARIN SODIUM [Suspect]
     Route: 058
     Dates: start: 20080629, end: 20080630
  2. PLAVIX [Suspect]
     Route: 048
     Dates: start: 20080629, end: 20080630
  3. ASPIRIN [Concomitant]
     Route: 048
     Dates: start: 20080629, end: 20080630
  4. LACTULOSE [Concomitant]
     Route: 048
     Dates: start: 20080629, end: 20080630
  5. SIMVASTATIN [Concomitant]
     Route: 048
     Dates: start: 20080629, end: 20080630
  6. INSULIN [Concomitant]
     Route: 042
     Dates: start: 20080629, end: 20080630
  7. OMEPRAZOLE [Concomitant]
     Route: 042
     Dates: start: 20080629, end: 20080630

REACTIONS (1)
  - ARRHYTHMIA [None]
